FAERS Safety Report 21126281 (Version 4)
Quarter: 2023Q1

REPORT INFORMATION
  Report Type: Spontaneous
  Country: US (occurrence: US)
  Receive Date: 20220725
  Receipt Date: 20230124
  Transmission Date: 20230418
  Serious: No
  Sender: FDA-Public Use
  Company Number: US-PFIZER INC-202200806916

PATIENT
  Age: 45 Year
  Sex: Male

DRUGS (2)
  1. XELJANZ [Suspect]
     Active Substance: TOFACITINIB CITRATE
     Indication: Colitis ulcerative
     Dosage: 15 MG, 2X/DAY (5MG TABLET- 3 TABLETS (15MG) BY MOUTH TWO TIMES A DAY)
     Route: 048
     Dates: start: 2020
  2. XELJANZ [Suspect]
     Active Substance: TOFACITINIB CITRATE
     Dosage: 15 MG, 2X/DAY
     Route: 048

REACTIONS (4)
  - Drug ineffective [Unknown]
  - Off label use [Unknown]
  - COVID-19 [Recovered/Resolved]
  - Frequent bowel movements [Unknown]

NARRATIVE: CASE EVENT DATE: 20200101
